FAERS Safety Report 7935304 (Version 8)
Quarter: 2012Q4

REPORT INFORMATION
  Report Type: 
  Country: US (occurrence: US)
  Receive Date: 20110509
  Receipt Date: 20120913
  Transmission Date: 20130627
  Serious: Yes (Hospitalization, Disabling, Other)
  Sender: FDA-Public Use
  Company Number: US-ROCHE-549222

PATIENT
  Age: 33 None
  Sex: Male
  Weight: 72.6 kg

DRUGS (3)
  1. ACCUTANE [Suspect]
     Indication: ACNE
     Route: 048
  2. ACCUTANE [Suspect]
     Dosage: PATIENT WAS PRESCRIBED ACCUTANE 80 MG DAILY
     Route: 048
     Dates: start: 19970903, end: 19971228
  3. ALBUTEROL [Concomitant]
     Indication: ASTHMA
     Dosage: HE WAS TAKING ALBUTEROL INHALERS AS NEEDED
     Route: 055

REACTIONS (13)
  - Colitis ulcerative [Unknown]
  - Colitis [Unknown]
  - Emotional distress [Not Recovered/Not Resolved]
  - Depression [Unknown]
  - Arthralgia [Recovered/Resolved]
  - Spinal compression fracture [Recovered/Resolved with Sequelae]
  - Post-traumatic stress disorder [Unknown]
  - Crohn^s disease [Unknown]
  - Lip dry [Unknown]
  - Dry skin [Unknown]
  - Nasal dryness [Unknown]
  - Ocular hyperaemia [Unknown]
  - Osteopenia [Unknown]
